FAERS Safety Report 25935443 (Version 1)
Quarter: 2025Q4

REPORT INFORMATION
  Report Type: Spontaneous
  Country: US (occurrence: US)
  Receive Date: 20251017
  Receipt Date: 20251017
  Transmission Date: 20260117
  Serious: No
  Sender: SANOFI AVENTIS
  Company Number: US-SA-2025SA309547

PATIENT
  Sex: Male

DRUGS (8)
  1. DUPIXENT [Suspect]
     Active Substance: DUPILUMAB
     Indication: Pemphigoid
     Dosage: 300 MG, QOW
     Route: 058
  2. ASPIRIN [Concomitant]
     Active Substance: ASPIRIN
     Dosage: UNK
  3. DOXYCYCLINE [Concomitant]
     Active Substance: DOXYCYCLINE
  4. FISH OIL [Concomitant]
     Active Substance: FISH OIL
  5. LISINOPRIL [Concomitant]
     Active Substance: LISINOPRIL
  6. METOPROLOL SUCCINATE [Concomitant]
     Active Substance: METOPROLOL SUCCINATE
  7. VITAMINS NOS [Concomitant]
     Active Substance: VITAMINS
  8. TAMSULOSIN HYDROCHLORIDE [Concomitant]
     Active Substance: TAMSULOSIN HYDROCHLORIDE

REACTIONS (1)
  - Arthralgia [Unknown]
